FAERS Safety Report 14827792 (Version 1)
Quarter: 2018Q2

REPORT INFORMATION
  Report Type: Spontaneous
  Country: US (occurrence: US)
  Receive Date: 20180406
  Receipt Date: 20180406
  Transmission Date: 20180711
  Serious: Yes (Disabling)
  Sender: FDA-Public Use
  Company Number: None

PATIENT
  Age: 21 Year
  Sex: Female
  Weight: 54 kg

DRUGS (4)
  1. VITAMIN K [Concomitant]
     Active Substance: PHYTONADIONE
  2. VITAMIN D [Concomitant]
     Active Substance: CHOLECALCIFEROL
  3. EVEKEO [Suspect]
     Active Substance: AMPHETAMINE SULFATE
     Indication: ATTENTION DEFICIT/HYPERACTIVITY DISORDER
     Dosage: ?          QUANTITY:1 TABLET(S);?
     Route: 048
  4. MULTIVITAMIN B [Concomitant]

REACTIONS (8)
  - Anxiety [None]
  - Palpitations [None]
  - Bundle branch block [None]
  - Multiple sclerosis [None]
  - Pain [None]
  - Temperature intolerance [None]
  - Hypoaesthesia [None]
  - Asthma [None]

NARRATIVE: CASE EVENT DATE: 20160416
